FAERS Safety Report 6341138-1 (Version None)
Quarter: 2009Q3

REPORT INFORMATION
  Report Type: 
  Country: None (occurrence: None)
  Receive Date: 20090904
  Receipt Date: 20090420
  Transmission Date: 20100115
  Serious: No
  Sender: FDA-Public Use
  Company Number: A0767149A

PATIENT
  Age: 67 Year
  Sex: Male

DRUGS (2)
  1. REQUIP [Suspect]
     Indication: PARKINSON'S DISEASE
     Route: 048
     Dates: start: 20071201
  2. OTHER MEDICATIONS [Concomitant]

REACTIONS (2)
  - ABNORMAL BEHAVIOUR [None]
  - PATHOLOGICAL GAMBLING [None]
